FAERS Safety Report 10926921 (Version 1)
Quarter: 2015Q1

REPORT INFORMATION
  Report Type: Spontaneous
  Country: IT (occurrence: IT)
  Receive Date: 20150318
  Receipt Date: 20150318
  Transmission Date: 20150721
  Serious: Yes (Life-Threatening)
  Sender: FDA-Public Use
  Company Number: PHHY2015IT029026

PATIENT
  Sex: Male

DRUGS (2)
  1. ACIDO ZOLEDRONICO FRESENIUS KABI [Concomitant]
     Indication: METASTASES TO BONE
     Dosage: 4 MG, UNK
     Route: 042
     Dates: start: 20130306, end: 20150302
  2. DOCETAXEL SANDOZ [Suspect]
     Active Substance: DOCETAXEL
     Indication: PROSTATE CANCER METASTATIC
     Dosage: 131 MG, CYCLIC
     Route: 042
     Dates: start: 20141015

REACTIONS (3)
  - Enterocolitis [Not Recovered/Not Resolved]
  - Dehydration [Not Recovered/Not Resolved]
  - Hypokalaemia [Not Recovered/Not Resolved]

NARRATIVE: CASE EVENT DATE: 20150223
